FAERS Safety Report 24971308 (Version 1)
Quarter: 2025Q1

REPORT INFORMATION
  Report Type: Other
  Country: US (occurrence: US)
  Receive Date: 20250214
  Receipt Date: 20250214
  Transmission Date: 20250409
  Serious: Yes (Other)
  Sender: VISTAPHARM
  Company Number: US-Vista Pharmaceuticals Inc.-2171124

PATIENT
  Age: 9 Decade
  Sex: Male

DRUGS (3)
  1. SULFAMETHOXAZOLE\TRIMETHOPRIM [Suspect]
     Active Substance: SULFAMETHOXAZOLE\TRIMETHOPRIM
     Indication: Nocardiosis
  2. PREDNISONE [Concomitant]
     Active Substance: PREDNISONE
  3. IMIPENEM [Concomitant]
     Active Substance: IMIPENEM

REACTIONS (2)
  - Acute kidney injury [Unknown]
  - Drug ineffective for unapproved indication [Unknown]
